FAERS Safety Report 12258792 (Version 1)
Quarter: 2016Q2

REPORT INFORMATION
  Report Type: Spontaneous
  Country: US (occurrence: US)
  Receive Date: 20160412
  Receipt Date: 20160412
  Transmission Date: 20160815
  Serious: No
  Sender: FDA-Public Use
  Company Number: US-SA-2015SA059735

PATIENT
  Age: 6 Year
  Sex: Male

DRUGS (2)
  1. ALLEGRA [Suspect]
     Active Substance: FEXOFENADINE HYDROCHLORIDE
     Indication: MULTIPLE ALLERGIES
     Dosage: FRQUENCY:1 TEASPOON 1-2 TIMES A DAY AS NEEDED
     Route: 048
  2. ALLEGRA [Suspect]
     Active Substance: FEXOFENADINE HYDROCHLORIDE
     Indication: MULTIPLE ALLERGIES
     Dosage: FRQUENCY:1 TEASPOON 1-2 TIMES A DAY AS NEEDED
     Route: 048
     Dates: start: 2014

REACTIONS (2)
  - Adverse reaction [Unknown]
  - Drug ineffective [Unknown]
